FAERS Safety Report 24793640 (Version 1)
Quarter: 2024Q4

REPORT INFORMATION
  Report Type: Other
  Country: US (occurrence: US)
  Receive Date: 20241231
  Receipt Date: 20241231
  Transmission Date: 20250115
  Serious: Yes (Hospitalization, Other)
  Sender: APPCO PHARMA LLC
  Company Number: US-Appco Pharma LLC-2168108

PATIENT
  Age: 61 Year

DRUGS (9)
  1. DOXYCYCLINE [Suspect]
     Active Substance: DOXYCYCLINE
     Indication: Pseudomonas infection
  2. DOXYCYCLINE [Suspect]
     Active Substance: DOXYCYCLINE
     Indication: Staphylococcal infection
  3. VANCOMYCIN HYDROCHLORIDE [Suspect]
     Active Substance: VANCOMYCIN HYDROCHLORIDE
  4. CLOBETASOL PROPIONATE OINT 0.05% [Concomitant]
     Active Substance: CLOBETASOL PROPIONATE
  5. PIPERACILLIN AND TAZOBACTAM [Suspect]
     Active Substance: PIPERACILLIN SODIUM\TAZOBACTAM SODIUM
  6. CEPHALEXIN [Suspect]
     Active Substance: CEPHALEXIN
  7. CEFTAZIDIME [Suspect]
     Active Substance: CEFTAZIDIME
  8. CEFEPIME [Suspect]
     Active Substance: CEFEPIME HYDROCHLORIDE
  9. LEVOFLOXACIN [Suspect]
     Active Substance: LEVOFLOXACIN

REACTIONS (1)
  - Drug ineffective [Unknown]
